FAERS Safety Report 25362097 (Version 1)
Quarter: 2025Q2

REPORT INFORMATION
  Report Type: Spontaneous
  Country: US (occurrence: US)
  Receive Date: 20250527
  Receipt Date: 20250527
  Transmission Date: 20250716
  Serious: Yes (Hospitalization)
  Sender: BAYER HEALTHCARE LLC
  Company Number: US-BAYER-2025A067920

PATIENT
  Age: 74 Year
  Sex: Female

DRUGS (1)
  1. NAPROXEN SODIUM [Suspect]
     Active Substance: NAPROXEN SODIUM
     Indication: Fibromyalgia
     Dosage: 30 DF, QD

REACTIONS (10)
  - Gastric fistula [None]
  - Pneumopericardium [None]
  - Pericarditis [None]
  - Melaena [None]
  - Gastric ulcer [None]
  - Pericardial perforation [None]
  - Gastric perforation [None]
  - Fistula [None]
  - Drug abuse [None]
  - Overdose [None]
